FAERS Safety Report 14718597 (Version 1)
Quarter: 2018Q2

REPORT INFORMATION
  Report Type: Spontaneous
  Country: BE (occurrence: US)
  Receive Date: 20180404
  Receipt Date: 20180404
  Transmission Date: 20180711
  Serious: Yes (Life-Threatening, Hospitalization, Disabling, Other)
  Sender: FDA-Public Use
  Company Number: BE-ABBVIE-18K-013-2311856-00

PATIENT
  Sex: Female

DRUGS (2)
  1. NOREPINEPHRINE BITARTRATE. [Suspect]
     Active Substance: NOREPINEPHRINE BITARTRATE
     Indication: PRODUCT USED FOR UNKNOWN INDICATION
     Route: 065
  2. HUMIRA [Suspect]
     Active Substance: ADALIMUMAB
     Indication: ARTHRITIS
     Route: 058

REACTIONS (7)
  - Limb amputation [Recovered/Resolved with Sequelae]
  - Pneumonia [Unknown]
  - Sepsis [Recovered/Resolved with Sequelae]
  - Coma [Recovered/Resolved]
  - Nasopharyngitis [Unknown]
  - Immunosuppression [Unknown]
  - Poor peripheral circulation [Unknown]
